FAERS Safety Report 18770356 (Version 1)
Quarter: 2021Q1

REPORT INFORMATION
  Report Type: Spontaneous
  Country: US (occurrence: US)
  Receive Date: 20210121
  Receipt Date: 20210121
  Transmission Date: 20210419
  Serious: No
  Sender: FDA-Public Use
  Company Number: US-TAKEDA-2021TUS003443

PATIENT
  Sex: Female

DRUGS (1)
  1. VYVANSE [Suspect]
     Active Substance: LISDEXAMFETAMINE DIMESYLATE
     Indication: EATING DISORDER
     Dosage: 30 MILLIGRAM, QD
     Route: 048

REACTIONS (4)
  - Inability to afford medication [Unknown]
  - Withdrawal syndrome [Unknown]
  - Adverse reaction [Unknown]
  - Inappropriate schedule of product administration [Unknown]
